FAERS Safety Report 4965009-8 (Version None)
Quarter: 2006Q2

REPORT INFORMATION
  Report Type: 
  Country: None (occurrence: None)
  Receive Date: 20060403
  Receipt Date: 20060317
  Transmission Date: 20061013
  Serious: No
  Sender: FDA-Public Use
  Company Number: 2006BL001433

PATIENT
  Age: 74 Year
  Sex: Female

DRUGS (8)
  1. MINIMS CHLORAMPHENICOL 0.5% (CHLORAMPHENICOL) [Suspect]
  2. MINIMS LIGNOCAINE + FLUORESCEIN (LIDOCAINE/FLUORESCEIN) [Suspect]
     Indication: LOCAL ANAESTHESIA
     Dosage: INTRAOCULAR
     Route: 031
  3. BUPIVACAINE [Suspect]
     Indication: LOCAL ANAESTHESIA
     Dosage: 20 MILLIGRAMS; DAILY; INTRAOCULAR
     Route: 031
  4. HYALURONIDASE [Suspect]
     Indication: LOCAL ANAESTHESIA
     Dosage: INTRAOCULAR
     Route: 031
  5. MINIMS PROXYMETACAINE 0.5% (PROXYMETACAINE) [Suspect]
     Indication: LOCAL ANAESTHESIA
     Dosage: INTRAOCULAR
     Route: 031
  6. POVIDONE IODINE [Suspect]
     Indication: ENDOPHTHALMITIS
     Dosage: TOPICAL
     Route: 061
  7. CEFUROXIME [Suspect]
     Dosage: SUBCONJUNCTIVAL
     Route: 057
  8. PREDNISOLONE SODIUM PHOSPHATE [Suspect]

REACTIONS (5)
  - CONJUNCTIVAL OEDEMA [None]
  - EXOPHTHALMOS [None]
  - EYE PAIN [None]
  - INTRAOCULAR PRESSURE INCREASED [None]
  - POST PROCEDURAL COMPLICATION [None]
